FAERS Safety Report 7017992-7 (Version None)
Quarter: 2010Q3

REPORT INFORMATION
  Report Type: 
  Country: None (occurrence: None)
  Receive Date: 20100928
  Receipt Date: 20100917
  Transmission Date: 20110219
  Serious: Yes (Other)
  Sender: FDA-Public Use
  Company Number: JP-WYE-H17316010

PATIENT
  Age: 25 Year
  Sex: Female
  Weight: 41 kg

DRUGS (2)
  1. PREMARIN [Suspect]
     Indication: TURNER'S SYNDROME
     Route: 048
     Dates: start: 20020101
  2. MEDROXYPROGESTERONE ACETATE [Concomitant]
     Indication: TURNER'S SYNDROME
     Route: 048
     Dates: start: 20020101

REACTIONS (1)
  - TONGUE NEOPLASM BENIGN [None]
